FAERS Safety Report 25606755 (Version 2)
Quarter: 2025Q3

REPORT INFORMATION
  Report Type: Spontaneous
  Country: EU (occurrence: EU)
  Receive Date: 20250725
  Receipt Date: 20250814
  Transmission Date: 20251021
  Serious: Yes (Other)
  Sender: UCB
  Company Number: EU-UCBSA-2025045062

PATIENT
  Sex: Female
  Weight: 67 kg

DRUGS (3)
  1. BIMZELX [Suspect]
     Active Substance: BIMEKIZUMAB-BKZX
     Indication: Axial spondyloarthritis
     Dosage: 160 MILLIGRAM, EV 4 WEEKS
     Route: 058
     Dates: start: 202504, end: 20250627
  2. MELOXICAM [Concomitant]
     Active Substance: MELOXICAM
     Indication: Spondylitis
     Dosage: 15 MILLIGRAM, ONCE DAILY (QD)
     Route: 048
     Dates: start: 20250326, end: 20250617
  3. ISONIAZID\RIFAMPIN [Concomitant]
     Active Substance: ISONIAZID\RIFAMPIN
     Indication: Latent tuberculosis
     Dosage: UNK (300/15 MG)
     Route: 048
     Dates: start: 20250328, end: 20250623

REACTIONS (5)
  - Tuberculosis [Unknown]
  - Cell death [Not Recovered/Not Resolved]
  - Blood test abnormal [Unknown]
  - Haemoglobin decreased [Recovered/Resolved]
  - Haematocrit decreased [Unknown]

NARRATIVE: CASE EVENT DATE: 20250101
